FAERS Safety Report 15590381 (Version 2)
Quarter: 2018Q4

REPORT INFORMATION
  Report Type: Spontaneous
  Country: US (occurrence: US)
  Receive Date: 20181106
  Receipt Date: 20181113
  Transmission Date: 20190205
  Serious: No
  Sender: FDA-Public Use
  Company Number: US-VERTEX PHARMACEUTICALS-2018-008165

PATIENT
  Sex: Male

DRUGS (11)
  1. ADVAIR HFA [Concomitant]
     Active Substance: FLUTICASONE PROPIONATE\SALMETEROL XINAFOATE
  2. VENTOLIN [Concomitant]
     Active Substance: ALBUTEROL SULFATE
  3. PULMOZYME [Concomitant]
     Active Substance: DORNASE ALFA
  4. ALBUTEROL                          /00139501/ [Concomitant]
     Active Substance: ALBUTEROL
  5. MONTELUKAST [Concomitant]
     Active Substance: MONTELUKAST SODIUM
  6. PANTOPRAZOLE [Concomitant]
     Active Substance: PANTOPRAZOLE
  7. PROAIR HFA [Concomitant]
     Active Substance: ALBUTEROL SULFATE
  8. TOBI [Concomitant]
     Active Substance: TOBRAMYCIN
  9. SMZ-TMP [Concomitant]
     Active Substance: SULFAMETHOXAZOLE\TRIMETHOPRIM
  10. KALYDECO [Suspect]
     Active Substance: IVACAFTOR
     Indication: CYSTIC FIBROSIS
     Dosage: 150 MG, BID
     Route: 048
     Dates: start: 20180313
  11. FLUTICASONE. [Concomitant]
     Active Substance: FLUTICASONE

REACTIONS (1)
  - Dyspnoea [Not Recovered/Not Resolved]

NARRATIVE: CASE EVENT DATE: 2018
